FAERS Safety Report 11168504 (Version 1)
Quarter: 2015Q2

REPORT INFORMATION
  Report Type: Spontaneous
  Country: US (occurrence: US)
  Receive Date: 20150605
  Receipt Date: 20150605
  Transmission Date: 20150821
  Serious: No
  Sender: FDA-Public Use
  Company Number: US-PFIZER INC-2015187228

PATIENT
  Age: 59 Year
  Sex: Female
  Weight: 108.84 kg

DRUGS (4)
  1. LYRICA [Suspect]
     Active Substance: PREGABALIN
     Dosage: 150 MG, UNK
  2. LYRICA [Suspect]
     Active Substance: PREGABALIN
     Dosage: 200 MG, 3X/DAY
  3. LYRICA [Suspect]
     Active Substance: PREGABALIN
     Indication: DIABETIC NEUROPATHY
     Dosage: UNK
     Dates: start: 2011
  4. LYRICA [Suspect]
     Active Substance: PREGABALIN
     Dosage: 75 UNK, UNK

REACTIONS (3)
  - Pain [Recovered/Resolved]
  - Glycosylated haemoglobin increased [Unknown]
  - Blood triglycerides abnormal [Unknown]
